FAERS Safety Report 5660964-5 (Version None)
Quarter: 2008Q1

REPORT INFORMATION
  Report Type: 
  Country: None (occurrence: None)
  Receive Date: 20080311
  Receipt Date: 20080306
  Transmission Date: 20080703
  Serious: Yes (Other)
  Sender: FDA-Public Use
  Company Number: US-ALLERGAN-0802568US

PATIENT
  Sex: Male

DRUGS (8)
  1. ACULAR LS [Suspect]
     Indication: POSTOPERATIVE CARE
     Dosage: UNK, UNK
     Route: 047
     Dates: start: 20080220, end: 20080220
  2. LIPITOR [Concomitant]
  3. ENDURON [Concomitant]
  4. ATENOLOL [Concomitant]
  5. ASPIRIN [Concomitant]
  6. PREVACID [Concomitant]
  7. VEXOL [Concomitant]
     Route: 047
  8. VIGAMOX [Concomitant]
     Route: 047

REACTIONS (1)
  - CHEST PAIN [None]
